FAERS Safety Report 12640649 (Version 2)
Quarter: 2016Q3

REPORT INFORMATION
  Report Type: Spontaneous
  Country: US (occurrence: US)
  Receive Date: 20160810
  Receipt Date: 20160811
  Transmission Date: 20161109
  Serious: No
  Sender: FDA-Public Use
  Company Number: US-BEH-2016072075

PATIENT
  Age: 46 Year
  Sex: Female
  Weight: 105.21 kg

DRUGS (20)
  1. HIZENTRA [Suspect]
     Active Substance: HUMAN IMMUNOGLOBULIN G
     Indication: ILL-DEFINED DISORDER
     Dosage: 8 G, QOW
     Route: 058
     Dates: start: 20160209
  2. DIPHENHYDRAMINE. [Concomitant]
     Active Substance: DIPHENHYDRAMINE
  3. AMBIEN [Concomitant]
     Active Substance: ZOLPIDEM TARTRATE
  4. MYCOPHENOLATE [Concomitant]
     Active Substance: MYCOPHENOLIC ACID
  5. EPIPEN [Concomitant]
     Active Substance: EPINEPHRINE
  6. CLINDAMYCIN [Concomitant]
     Active Substance: CLINDAMYCIN\CLINDAMYCIN PHOSPHATE
  7. TOPROL XL [Concomitant]
     Active Substance: METOPROLOL SUCCINATE
  8. ATORVASTATIN [Concomitant]
     Active Substance: ATORVASTATIN
  9. CLEOCIN [Concomitant]
     Active Substance: CLINDAMYCIN PHOSPHATE
  10. LIDOCAINE. [Concomitant]
     Active Substance: LIDOCAINE
  11. EFFEXOR [Concomitant]
     Active Substance: VENLAFAXINE HYDROCHLORIDE
  12. MAXZIDE [Concomitant]
     Active Substance: HYDROCHLOROTHIAZIDE\TRIAMTERENE
  13. ALEVE [Concomitant]
     Active Substance: NAPROXEN SODIUM
  14. ALMOTRIPTAN. [Concomitant]
     Active Substance: ALMOTRIPTAN
  15. KLOR-CON [Concomitant]
     Active Substance: POTASSIUM CHLORIDE
  16. ACETAMINOPHEN. [Concomitant]
     Active Substance: ACETAMINOPHEN
  17. LYRICA [Concomitant]
     Active Substance: PREGABALIN
  18. BETAMETHASONE. [Concomitant]
     Active Substance: BETAMETHASONE
  19. CYCLOBENZAPRINE [Concomitant]
     Active Substance: CYCLOBENZAPRINE
  20. LORATADINE D [Concomitant]
     Active Substance: LORATADINE\PSEUDOEPHEDRINE SULFATE

REACTIONS (5)
  - Administration site discolouration [Unknown]
  - Infusion site mass [Unknown]
  - Administration site bruise [Unknown]
  - Infusion site pain [Unknown]
  - Oedema [Unknown]

NARRATIVE: CASE EVENT DATE: 20160401
